FAERS Safety Report 5053161-8 (Version None)
Quarter: 2006Q3

REPORT INFORMATION
  Report Type: 
  Country: None (occurrence: None)
  Receive Date: 20060712
  Receipt Date: 20060622
  Transmission Date: 20061208
  Serious: Yes (Hospitalization)
  Sender: FDA-Public Use
  Company Number: US200606005165

PATIENT
  Age: 58 Year
  Sex: Male

DRUGS (6)
  1. HUMALOG MIX 75/25 [Suspect]
     Indication: DIABETES MELLITUS
     Dates: start: 20020101
  2. METOPROLOL SUCCINATE [Concomitant]
  3. PROGRAF   /USA/ (TACROLIMUS) [Concomitant]
  4. VICODIN [Concomitant]
  5. ASPIRIN [Concomitant]
  6. LIPITOR [Concomitant]

REACTIONS (4)
  - BLOOD GLUCOSE INCREASED [None]
  - HIP ARTHROPLASTY [None]
  - RENAL IMPAIRMENT [None]
  - RENAL TRANSPLANT [None]
